FAERS Safety Report 5484615-8 (Version None)
Quarter: 2007Q4

REPORT INFORMATION
  Report Type: 
  Country: None (occurrence: None)
  Receive Date: 20071012
  Receipt Date: 20071003
  Transmission Date: 20080405
  Serious: Yes (Other)
  Sender: FDA-Public Use
  Company Number: US-PFIZER INC-2007083311

PATIENT
  Sex: Female
  Weight: 68 kg

DRUGS (4)
  1. XALATAN [Suspect]
     Indication: INTRAOCULAR PRESSURE INCREASED
     Route: 047
  2. XALATAN [Suspect]
     Indication: RETINAL ARTERY OCCLUSION
  3. ALLER-EZE [Concomitant]
  4. SYNTHROID [Concomitant]
     Indication: THYROID DISORDER

REACTIONS (4)
  - ABDOMINAL PAIN [None]
  - EYE PAIN [None]
  - MEDIASTINAL MASS [None]
  - VITREOUS FLOATERS [None]
